FAERS Safety Report 5318867-1 (Version None)
Quarter: 2007Q2

REPORT INFORMATION
  Report Type: 
  Country: None (occurrence: None)
  Receive Date: 20070508
  Receipt Date: 20070425
  Transmission Date: 20071010
  Serious: Yes (Hospitalization)
  Sender: FDA-Public Use
  Company Number: JP-ROCHE-491564

PATIENT
  Age: 8 Year
  Sex: Male
  Weight: 25 kg

DRUGS (5)
  1. TAMIFLU [Suspect]
     Dosage: FORM: DRY SYRUP.
     Route: 048
     Dates: start: 20070319, end: 20070319
  2. TAMIFLU [Suspect]
     Route: 048
     Dates: start: 20070317, end: 20070317
  3. TAMIFLU [Suspect]
     Route: 048
     Dates: start: 20070318, end: 20070318
  4. ZADITEN [Concomitant]
     Dosage: GENERIC REPORTED AS KETOTIFEN FUMARATE.
     Route: 048
     Dates: start: 20070317
  5. ACETAMINOPHEN [Concomitant]
     Dosage: FORM: FINE GRANULE.
     Route: 048
     Dates: start: 20070317

REACTIONS (2)
  - ABNORMAL BEHAVIOUR [None]
  - RESTLESSNESS [None]
